FAERS Safety Report 9449736 (Version 3)
Quarter: 2013Q4

REPORT INFORMATION
  Report Type: Spontaneous
  Country: US (occurrence: US)
  Receive Date: 20130809
  Receipt Date: 20131126
  Transmission Date: 20140711
  Serious: Yes (Other)
  Sender: FDA-Public Use
  Company Number: US-JNJFOC-20130700085

PATIENT
  Sex: Female

DRUGS (15)
  1. TOPAMAX [Suspect]
     Indication: MIGRAINE
     Route: 048
     Dates: start: 200704, end: 200707
  2. TOPAMAX [Suspect]
     Indication: CONVULSION
     Route: 048
     Dates: start: 200704, end: 200707
  3. TOPROL [Suspect]
     Indication: PRODUCT USED FOR UNKNOWN INDICATION
     Route: 065
  4. DEMEROL [Suspect]
     Indication: PRODUCT USED FOR UNKNOWN INDICATION
     Route: 065
  5. VICODIN [Suspect]
     Indication: PRODUCT USED FOR UNKNOWN INDICATION
     Route: 065
  6. MEPERIDINE [Suspect]
     Indication: PAIN
     Route: 048
  7. ALPRAZOLAM [Suspect]
     Indication: NERVOUSNESS
     Route: 048
  8. ALPRAZOLAM [Suspect]
     Indication: ANXIETY
     Route: 048
  9. NEXIUM [Suspect]
     Indication: GASTRITIS
     Route: 048
  10. METOPROLOL [Suspect]
     Indication: HYPERTENSION
     Route: 048
  11. HYDROCODONE/APAP [Suspect]
     Indication: PAIN
     Route: 065
  12. LISINOPRIL/HCTZ [Suspect]
     Indication: HYPERTENSION
     Route: 048
  13. PROMETHAZINE [Suspect]
     Indication: VOMITING
     Route: 048
  14. PROMETHAZINE [Suspect]
     Indication: NAUSEA
     Route: 048
  15. PRENATAL VITAMINS [Concomitant]
     Indication: PRODUCT USED FOR UNKNOWN INDICATION
     Route: 065

REACTIONS (3)
  - Convulsion [Unknown]
  - Migraine [Unknown]
  - Exposure during pregnancy [Recovered/Resolved]
